FAERS Safety Report 6736965-2 (Version None)
Quarter: 2010Q2

REPORT INFORMATION
  Report Type: 
  Country: None (occurrence: None)
  Receive Date: 20100523
  Receipt Date: 20100517
  Transmission Date: 20101027
  Serious: Yes (Life-Threatening)
  Sender: FDA-Public Use
  Company Number: JP-ASTRAZENECA-2010SE18685

PATIENT
  Age: 81 Year
  Sex: Male

DRUGS (2)
  1. MEROPEN [Suspect]
     Indication: INFECTION
     Route: 042
     Dates: start: 20100417, end: 20100418
  2. FIRSTCIN [Concomitant]
     Indication: INFECTION
     Route: 042
     Dates: end: 20100416

REACTIONS (1)
  - RENAL DISORDER [None]
